FAERS Safety Report 4390271-2 (Version None)
Quarter: 2004Q3

REPORT INFORMATION
  Report Type: 
  Country: None (occurrence: None)
  Receive Date: 20040706
  Receipt Date: 20040625
  Transmission Date: 20050211
  Serious: Yes (Other)
  Sender: FDA-Public Use
  Company Number: BR-ROCHE-372232

PATIENT
  Age: 24 Year
  Sex: Female
  Weight: 56 kg

DRUGS (2)
  1. RIVOTRIL [Suspect]
     Indication: INSOMNIA
     Route: 048
     Dates: start: 20040602, end: 20040605
  2. PROZAC [Concomitant]
     Route: 048

REACTIONS (2)
  - SYNCOPE [None]
  - VOMITING [None]
